FAERS Safety Report 4441063-7 (Version None)
Quarter: 2004Q3

REPORT INFORMATION
  Report Type: 
  Country: None (occurrence: None)
  Receive Date: 20040830
  Receipt Date: 20030821
  Transmission Date: 20050211
  Serious: Yes (Other)
  Sender: FDA-Public Use
  Company Number: 03-000150

PATIENT
  Age: 58 Year
  Sex: Female
  Weight: 72.6 kg

DRUGS (3)
  1. FEMHRT [Suspect]
     Indication: MENOPAUSAL SYMPTOMS
     Dosage: 5/1000 UGQD, ORAL
     Route: 048
     Dates: start: 20020601, end: 20030714
  2. MULTIVITAMINS, COMBINATIONS [Concomitant]
  3. VITAMIN C (ASCORBIC ACID) TABLET [Concomitant]

REACTIONS (6)
  - DIFFICULTY IN WALKING [None]
  - ERYTHEMA [None]
  - PAIN IN EXTREMITY [None]
  - SKIN TIGHTNESS [None]
  - SKIN WARM [None]
  - THROMBOPHLEBITIS SUPERFICIAL [None]
